FAERS Safety Report 5952800-4 (Version None)
Quarter: 2008Q4

REPORT INFORMATION
  Report Type: 
  Country: None (occurrence: None)
  Receive Date: 20081114
  Receipt Date: 20081110
  Transmission Date: 20090506
  Serious: Yes (Other)
  Sender: FDA-Public Use
  Company Number: FR-JNJFOC-20080900802

PATIENT
  Sex: Female
  Weight: 68 kg

DRUGS (5)
  1. HALDOL [Suspect]
     Indication: PSYCHOTIC DISORDER
     Route: 030
  2. RISPERDAL [Suspect]
     Indication: DRUG USE FOR UNKNOWN INDICATION
     Dosage: EVENING
     Route: 048
  3. LEPTICUR [Concomitant]
     Dosage: MORNING
     Route: 048
  4. DEROXAT [Concomitant]
     Dosage: MORNING
     Route: 065
  5. THERALENE [Concomitant]
     Dosage: 20 DROPS IN THE EVENING
     Route: 048

REACTIONS (1)
  - BLOOD POTASSIUM DECREASED [None]
